FAERS Safety Report 7506046-9 (Version None)
Quarter: 2011Q2

REPORT INFORMATION
  Report Type: 
  Country: None (occurrence: None)
  Receive Date: 20110526
  Receipt Date: 20110517
  Transmission Date: 20111010
  Serious: Yes (Death, Other)
  Sender: FDA-Public Use
  Company Number: JP-ROCHE-770176

PATIENT
  Sex: Female

DRUGS (12)
  1. ACTEMRA [Suspect]
     Indication: RHEUMATOID ARTHRITIS
     Dosage: DOSAGE IS UNCERTAIN.
     Route: 041
     Dates: start: 20101111, end: 20110304
  2. ATELEC [Concomitant]
     Route: 048
     Dates: start: 20101105
  3. ISONIAZID [Concomitant]
     Route: 048
     Dates: start: 20101105
  4. ALOSENN [Concomitant]
     Dosage: GRANULATED POWDER
     Route: 048
     Dates: start: 20101105
  5. RIZE [Concomitant]
     Route: 048
     Dates: start: 20101105
  6. PURSENNID [Concomitant]
     Route: 048
     Dates: start: 20101105
  7. BENET [Concomitant]
     Route: 048
     Dates: start: 20101105
  8. PREDNISOLONE [Concomitant]
     Route: 048
     Dates: end: 20110320
  9. LANSOPRAZOLE [Concomitant]
     Route: 048
     Dates: start: 20101105
  10. CELCOX [Concomitant]
     Dosage: 200G DIVIDED IN TWO DOSES
     Route: 048
     Dates: start: 20101105
  11. CRESTOR [Concomitant]
     Route: 048
     Dates: start: 20101105
  12. TENORMIN [Concomitant]
     Route: 048
     Dates: start: 20101105

REACTIONS (3)
  - AORTITIS [None]
  - IMPLANT SITE EXTRAVASATION [None]
  - AORTIC ANEURYSM RUPTURE [None]
